FAERS Safety Report 5545284-1 (Version None)
Quarter: 2007Q4

REPORT INFORMATION
  Report Type: 
  Country: None (occurrence: None)
  Receive Date: 20071211
  Receipt Date: 20071204
  Transmission Date: 20080405
  Serious: Yes (Hospitalization)
  Sender: FDA-Public Use
  Company Number: PHEH2007US14943

PATIENT
  Age: 82 Year
  Sex: Female
  Weight: 65.759 kg

DRUGS (6)
  1. EXJADE [Suspect]
     Indication: IRON OVERLOAD
     Dosage: 1500 MG, QD
     Dates: start: 20070101
  2. PROZAC [Concomitant]
  3. ALLOPURINOL [Concomitant]
  4. DIGOXIN [Concomitant]
  5. VITAMIN B6 [Concomitant]
  6. FOLTX [Concomitant]

REACTIONS (3)
  - GASTROINTESTINAL HAEMORRHAGE [None]
  - GENERAL PHYSICAL CONDITION ABNORMAL [None]
  - ULCER [None]
